FAERS Safety Report 5499865-4 (Version None)
Quarter: 2007Q4

REPORT INFORMATION
  Report Type: 
  Country: None (occurrence: None)
  Receive Date: 20071026
  Receipt Date: 20071015
  Transmission Date: 20080405
  Serious: Yes (Other)
  Sender: FDA-Public Use
  Company Number: US-PFIZER INC-2007086553

PATIENT
  Sex: Female
  Weight: 56.8 kg

DRUGS (2)
  1. CHANTIX [Suspect]
     Indication: SMOKING CESSATION THERAPY
     Dates: start: 20071001, end: 20071005
  2. DOSTINEX [Concomitant]
     Indication: HYPERSENSITIVITY

REACTIONS (7)
  - ABDOMINAL DISTENSION [None]
  - ABNORMAL DREAMS [None]
  - DIZZINESS [None]
  - FLATULENCE [None]
  - IMPAIRED DRIVING ABILITY [None]
  - NAUSEA [None]
  - STOMACH DISCOMFORT [None]
